FAERS Safety Report 10324600 (Version 2)
Quarter: 2015Q1

REPORT INFORMATION
  Report Type: Other
  Country: US (occurrence: US)
  Receive Date: 20140720
  Receipt Date: 20150323
  Transmission Date: 20150720
  Serious: Yes (Hospitalization, Other)
  Sender: FDA-Public Use
  Company Number: US-GSKPPD-2014GSK035500

PATIENT
  Age: 77 Year
  Sex: Female

DRUGS (7)
  1. TOPROL XL [Concomitant]
     Active Substance: METOPROLOL SUCCINATE
  2. LASIX [Concomitant]
     Active Substance: FUROSEMIDE
  3. ALTACE [Concomitant]
     Active Substance: RAMIPRIL
  4. PLAVIX [Concomitant]
     Active Substance: CLOPIDOGREL BISULFATE
  5. AVANDIA [Suspect]
     Active Substance: ROSIGLITAZONE MALEATE
     Indication: DIABETES MELLITUS
     Route: 048
  6. ECOTRIN [Concomitant]
     Active Substance: ASPIRIN
  7. AMIODARONE [Concomitant]
     Active Substance: AMIODARONE

REACTIONS (1)
  - Cardiac failure congestive [Recovered/Resolved]

NARRATIVE: CASE EVENT DATE: 20031106
